FAERS Safety Report 25597178 (Version 1)
Quarter: 2025Q3

REPORT INFORMATION
  Report Type: Spontaneous
  Country: US (occurrence: US)
  Receive Date: 20250723
  Receipt Date: 20250723
  Transmission Date: 20251020
  Serious: Yes (Other)
  Sender: AMGEN
  Company Number: US-AMGEN-USASP2025140928

PATIENT
  Age: 36 Year
  Sex: Male

DRUGS (2)
  1. PREDNISONE [Suspect]
     Active Substance: PREDNISONE
     Indication: Pulmonary granuloma
     Route: 065
  2. MYCOPHENOLATE MOFETIL [Concomitant]
     Active Substance: MYCOPHENOLATE MOFETIL
     Indication: Pulmonary granuloma

REACTIONS (7)
  - Chronic respiratory failure [Unknown]
  - Inappropriate antidiuretic hormone secretion [Unknown]
  - Pulmonary granuloma [Unknown]
  - Malnutrition [Unknown]
  - Osteoporosis [Unknown]
  - Adverse event [Unknown]
  - Off label use [Unknown]
